FAERS Safety Report 5502862-3 (Version None)
Quarter: 2007Q4

REPORT INFORMATION
  Report Type: 
  Country: None (occurrence: None)
  Receive Date: 20071029
  Receipt Date: 20071029
  Transmission Date: 20080405
  Serious: Yes (Hospitalization)
  Sender: FDA-Public Use
  Company Number: None

PATIENT
  Age: 51 Year
  Sex: Male
  Weight: 134.2647 kg

DRUGS (1)
  1. AZATHIOPRINE [Suspect]
     Indication: COLITIS
     Dosage: 2 TABLETS ONCE DAILY
     Dates: start: 20070928, end: 20071009

REACTIONS (7)
  - ARTHRALGIA [None]
  - DEHYDRATION [None]
  - DIZZINESS [None]
  - FATIGUE [None]
  - INFLUENZA LIKE ILLNESS [None]
  - PYREXIA [None]
  - VISION BLURRED [None]
